FAERS Safety Report 23628305 (Version 1)
Quarter: 2024Q1

REPORT INFORMATION
  Report Type: Spontaneous
  Country: CH (occurrence: CH)
  Receive Date: 20240313
  Receipt Date: 20240313
  Transmission Date: 20240410
  Serious: Yes (Other)
  Sender: FDA-Public Use
  Company Number: CH-AMGEN-CHESP2024050208

PATIENT
  Age: 73 Year
  Sex: Male

DRUGS (1)
  1. LUMAKRAS [Suspect]
     Active Substance: SOTORASIB
     Indication: Lung neoplasm malignant
     Dosage: 8 DOSAGE FORM, QD (SWALLOW EIGHT TABLETS A DAY)
     Route: 048

REACTIONS (2)
  - Lung cancer metastatic [Unknown]
  - Therapy non-responder [Unknown]
